FAERS Safety Report 4604722-9 (Version None)
Quarter: 2005Q2

REPORT INFORMATION
  Report Type: 
  Country: None (occurrence: None)
  Receive Date: 20050217
  Receipt Date: 20041103
  Transmission Date: 20051028
  Serious: No
  Sender: FDA-Public Use
  Company Number: S04-USA-07394-01

PATIENT
  Age: 75 Year
  Sex: Male

DRUGS (12)
  1. NAMENDA [Suspect]
     Indication: DEMENTIA ALZHEIMER'S TYPE
     Dosage: 10 MG BID PO
     Route: 048
     Dates: start: 20040101
  2. NAMENDA [Suspect]
     Indication: DEMENTIA ALZHEIMER'S TYPE
     Dosage: 5 MG QD PO
     Route: 048
     Dates: start: 20040101, end: 20040101
  3. NAMENDA [Suspect]
     Indication: DEMENTIA ALZHEIMER'S TYPE
     Dosage: 5 MG BID PO
     Route: 048
     Dates: start: 20040101, end: 20040101
  4. NAMENDA [Suspect]
     Indication: DEMENTIA ALZHEIMER'S TYPE
     Dosage: 15 MG QD PO
     Route: 048
     Dates: start: 20040101, end: 20040101
  5. XANAX [Concomitant]
  6. HYTRIN [Concomitant]
  7. PROSCAR [Concomitant]
  8. ARICEPT [Concomitant]
  9. ASPIRIN [Concomitant]
  10. VITAMIN B COMPLEX CAP [Concomitant]
  11. VITAMIN E [Concomitant]
  12. WELLBUTRIN [Concomitant]

REACTIONS (2)
  - AGGRESSION [None]
  - ANGER [None]
